FAERS Safety Report 25135076 (Version 1)
Quarter: 2025Q1

REPORT INFORMATION
  Report Type: Spontaneous
  Country: US (occurrence: US)
  Receive Date: 20250328
  Receipt Date: 20250328
  Transmission Date: 20250408
  Serious: Yes (Hospitalization, Other)
  Sender: SANOFI AVENTIS
  Company Number: US-SA-2025SA089659

PATIENT
  Age: 63 Year
  Sex: Male

DRUGS (1)
  1. DUPILUMAB [Suspect]
     Active Substance: DUPILUMAB
     Indication: Dermatitis atopic

REACTIONS (17)
  - Liver abscess [Recovering/Resolving]
  - Chills [Recovering/Resolving]
  - Tachycardia [Recovering/Resolving]
  - Staphylococcal infection [Recovering/Resolving]
  - Bacteraemia [Recovering/Resolving]
  - Respiratory syncytial virus infection [Recovering/Resolving]
  - Hypoxia [Recovering/Resolving]
  - Tachypnoea [Recovering/Resolving]
  - Wheezing [Recovering/Resolving]
  - Lung opacity [Recovering/Resolving]
  - Respiratory distress [Recovered/Resolved]
  - Ascariasis [Recovering/Resolving]
  - Pyrexia [Recovering/Resolving]
  - Influenza like illness [Recovering/Resolving]
  - Helminthic infection [Recovering/Resolving]
  - Abdominal pain upper [Recovering/Resolving]
  - Abdominal tenderness [Recovering/Resolving]
